FAERS Safety Report 6527398-2 (Version None)
Quarter: 2010Q1

REPORT INFORMATION
  Report Type: 
  Country: None (occurrence: None)
  Receive Date: 20100104
  Receipt Date: 20100104
  Transmission Date: 20100710
  Serious: Yes (Hospitalization)
  Sender: FDA-Public Use
  Company Number: None

PATIENT
  Age: 79 Year
  Sex: Male
  Weight: 97.5234 kg

DRUGS (1)
  1. TYLENOL (CAPLET) [Suspect]
     Dosage: 2 PILLS
     Dates: start: 20091218, end: 20091218

REACTIONS (2)
  - VERTIGO [None]
  - VOMITING [None]
